FAERS Safety Report 7617700-2 (Version None)
Quarter: 2011Q3

REPORT INFORMATION
  Report Type: 
  Country: None (occurrence: None)
  Receive Date: 20110718
  Receipt Date: 20110707
  Transmission Date: 20111222
  Serious: Yes (Other)
  Sender: FDA-Public Use
  Company Number: PHHY2011CA60889

PATIENT
  Age: 5 Year
  Sex: Female

DRUGS (5)
  1. MYCOPHENOLATE MOFETIL [Suspect]
     Indication: IMMUNOSUPPRESSANT DRUG THERAPY
     Dosage: 1-3 UG/ML, UNK
  2. SIROLIMUS [Suspect]
  3. TACROLIMUS [Suspect]
     Indication: IMMUNOSUPPRESSANT DRUG THERAPY
     Dosage: 10-12 MG/L
  4. TACROLIMUS [Suspect]
     Dosage: 5-7 MG/L
  5. AZATHIOPRINE [Suspect]

REACTIONS (9)
  - TRICHOSTASIS SPINULOSA [None]
  - PAIN OF SKIN [None]
  - DIARRHOEA [None]
  - RASH [None]
  - MADAROSIS [None]
  - DERMATITIS ACNEIFORM [None]
  - ANAEMIA [None]
  - RENAL IMPAIRMENT [None]
  - PAPULE [None]
